FAERS Safety Report 8986150 (Version 1)
Quarter: 2012Q4

REPORT INFORMATION
  Report Type: Spontaneous
  Country: US (occurrence: None)
  Receive Date: 20121213
  Receipt Date: 20121213
  Transmission Date: 20130627
  Serious: Yes (Disabling)
  Sender: FDA-Public Use
  Company Number: 2012SA087500

PATIENT
  Sex: Male

DRUGS (3)
  1. LANTUS [Suspect]
     Indication: TYPE II DIABETES MELLITUS
     Route: 058
  2. LANTUS [Suspect]
     Indication: TYPE II DIABETES MELLITUS
     Route: 058
  3. SOLOSTAR [Suspect]

REACTIONS (1)
  - Renal failure [None]
